FAERS Safety Report 16042828 (Version 1)
Quarter: 2019Q2

REPORT INFORMATION
  Report Type: Spontaneous
  Country: US (occurrence: US)
  Receive Date: 20190306
  Receipt Date: 20190306
  Transmission Date: 20190711
  Serious: Yes (Disabling)
  Sender: FDA-Public Use
  Company Number: None

PATIENT
  Age: 64 Year
  Sex: Female
  Weight: 74.25 kg

DRUGS (1)
  1. CIPROFLOXACIN. [Suspect]
     Active Substance: CIPROFLOXACIN
     Indication: INFECTION
     Route: 048
     Dates: start: 20180910, end: 20180930

REACTIONS (10)
  - Myalgia [None]
  - Pain in extremity [None]
  - Urinary tract infection [None]
  - Hypoaesthesia [None]
  - Arrhythmia [None]
  - Nosocomial infection [None]
  - Arthralgia [None]
  - Depression [None]
  - Joint noise [None]
  - Gait disturbance [None]

NARRATIVE: CASE EVENT DATE: 20181015
